FAERS Safety Report 11566335 (Version 2)
Quarter: 2015Q4

REPORT INFORMATION
  Report Type: Spontaneous
  Country: US (occurrence: US)
  Receive Date: 20150929
  Receipt Date: 20151001
  Transmission Date: 20160304
  Serious: No
  Sender: FDA-Public Use
  Company Number: US-009507513-1509USA013957

PATIENT
  Sex: Male

DRUGS (1)
  1. DULERA [Suspect]
     Active Substance: FORMOTEROL FUMARATE DIHYDRATE\MOMETASONE FUROATE
     Dosage: 100/5 MCG, TWICE DAILY
     Route: 048

REACTIONS (3)
  - No adverse event [Unknown]
  - Product quality issue [Unknown]
  - Incorrect dose administered [Unknown]
